FAERS Safety Report 13975078 (Version 1)
Quarter: 2017Q3

REPORT INFORMATION
  Report Type: Report from Study
  Country: None (occurrence: IL)
  Receive Date: 20170915
  Receipt Date: 20170915
  Transmission Date: 20171128
  Serious: Yes (Other)
  Sender: FDA-Public Use
  Company Number: IL-ABBVIE-16K-082-1674324-00

PATIENT
  Age: 74 Year
  Sex: Female

DRUGS (3)
  1. DUODOPA [Suspect]
     Active Substance: CARBIDOPA\LEVODOPA
     Indication: PARKINSON^S DISEASE
     Dosage: 2 ML/HOUR
     Route: 050
     Dates: start: 20130601
  2. DUODOPA [Suspect]
     Active Substance: CARBIDOPA\LEVODOPA
     Dosage: CURRENT MORNING DOSE- 10 ML, CURRENT FIXED RATE- 2.1 ML/HOUR, CURRENT EXTRA DOSE- 1 ML
     Route: 050
  3. DUODOPA [Suspect]
     Active Substance: CARBIDOPA\LEVODOPA
     Dosage: CURRENT MORNING DOSE- 10 ML, CURRENT FIXED RATE- 2.1 ML/HOUR, CURRENT EXTRA DOSE- 1 ML
     Route: 050
     Dates: start: 20160703

REACTIONS (22)
  - Asthenia [Unknown]
  - Stoma site induration [Unknown]
  - Nausea [Recovered/Resolved]
  - Nausea [Not Recovered/Not Resolved]
  - Hodgkin^s disease [Unknown]
  - Axillary pain [Not Recovered/Not Resolved]
  - Stoma site pain [Not Recovered/Not Resolved]
  - Stoma site erythema [Unknown]
  - Stoma site pain [Unknown]
  - Constipation [Recovering/Resolving]
  - Lymphoma [Unknown]
  - Abdominal rigidity [Unknown]
  - Vomiting [Recovering/Resolving]
  - Decreased appetite [Recovering/Resolving]
  - Asthenia [Not Recovered/Not Resolved]
  - Stoma site discomfort [Not Recovered/Not Resolved]
  - Vomiting [Not Recovered/Not Resolved]
  - Lymphadenopathy [Not Recovered/Not Resolved]
  - Stoma site discharge [Unknown]
  - Gastrointestinal inflammation [Recovering/Resolving]
  - Nausea [Recovering/Resolving]
  - Stoma site discharge [Unknown]

NARRATIVE: CASE EVENT DATE: 201607
